FAERS Safety Report 4756578-1 (Version None)
Quarter: 2005Q3

REPORT INFORMATION
  Report Type: 
  Country: None (occurrence: None)
  Receive Date: 20050830
  Receipt Date: 20050801
  Transmission Date: 20060218
  Serious: Yes (Disabling, Other)
  Sender: FDA-Public Use
  Company Number: CA-MERCK-0508CAN00001

PATIENT
  Age: 87 Year
  Sex: Female
  Weight: 75 kg

DRUGS (10)
  1. FOSAMAX [Suspect]
     Indication: OSTEOPOROSIS
     Route: 048
     Dates: start: 20050310
  2. CHOLECALCIFEROL [Concomitant]
     Indication: OSTEOPOROSIS
     Route: 048
     Dates: start: 20050310
  3. CALCIUM (UNSPECIFIED) [Concomitant]
     Indication: OSTEOPOROSIS
     Route: 065
     Dates: start: 20050310
  4. ENALAPRIL MALEATE [Concomitant]
     Indication: HYPERTENSION
     Route: 065
     Dates: start: 20020306
  5. TRIAMTERENE [Concomitant]
     Indication: HYPERTENSION
     Route: 065
     Dates: start: 19821001
  6. HYDROCHLOROTHIAZIDE [Concomitant]
     Indication: HYPERTENSION
     Route: 065
     Dates: start: 19821001
  7. ANASTROZOLE [Concomitant]
     Indication: BREAST CANCER
     Route: 065
     Dates: start: 20021001
  8. LORAZEPAM [Concomitant]
     Indication: ANXIETY
     Route: 065
     Dates: start: 19821001
  9. LORAZEPAM [Concomitant]
     Indication: INSOMNIA
     Route: 065
     Dates: start: 19821001
  10. DOCUSATE SODIUM [Concomitant]
     Indication: CONSTIPATION PROPHYLAXIS
     Route: 065
     Dates: start: 19921001

REACTIONS (2)
  - METASTASES TO LIVER [None]
  - NAUSEA [None]
